FAERS Safety Report 7434651-7 (Version None)
Quarter: 2011Q2

REPORT INFORMATION
  Report Type: 
  Country: None (occurrence: None)
  Receive Date: 20110425
  Receipt Date: 20110419
  Transmission Date: 20111010
  Serious: Yes (Hospitalization, Other)
  Sender: FDA-Public Use
  Company Number: US-AMGEN-USASP2011018523

PATIENT
  Age: 34 Year
  Sex: Female
  Weight: 63.51 kg

DRUGS (5)
  1. AMICAR [Concomitant]
     Dosage: UNK UNK, PRN
     Dates: start: 20100101
  2. PROPRANOLOL [Concomitant]
     Dosage: 60 MG, QD
     Route: 048
     Dates: start: 20071001
  3. NPLATE [Suspect]
     Indication: IDIOPATHIC THROMBOCYTOPENIC PURPURA
     Dosage: 10 A?G/KG, QWK
     Route: 058
     Dates: start: 20091030, end: 20100408
  4. ORAL CONTRACEPTIVE NOS [Concomitant]
     Dosage: UNK UNK, QD
  5. SYNTHROID [Concomitant]
     Dosage: 100 MG, UNK
     Route: 048

REACTIONS (5)
  - THERAPEUTIC RESPONSE DECREASED [None]
  - SUBDURAL HAEMORRHAGE [None]
  - CEREBRAL HAEMORRHAGE [None]
  - SNEEZING [None]
  - COUGH [None]
